FAERS Safety Report 23552669 (Version 2)
Quarter: 2024Q1

REPORT INFORMATION
  Report Type: Report from Study
  Country: PL (occurrence: PL)
  Receive Date: 20240222
  Receipt Date: 20240223
  Transmission Date: 20240410
  Serious: Yes (Other)
  Sender: FDA-Public Use
  Company Number: PL-Indoco-000501

PATIENT
  Age: 36 Year
  Sex: Female

DRUGS (2)
  1. LACOSAMIDE [Suspect]
     Active Substance: LACOSAMIDE
     Indication: Seizure
     Dosage: 50 MG EVERY WEEK TO 150 MG BID
  2. FOLIC ACID [Suspect]
     Active Substance: FOLIC ACID
     Indication: Supplementation therapy

REACTIONS (4)
  - Maternal exposure during pregnancy [Unknown]
  - Maternal exposure during breast feeding [Unknown]
  - Condition aggravated [Unknown]
  - Partial seizures [Unknown]
